FAERS Safety Report 15642494 (Version 4)
Quarter: 2019Q1

REPORT INFORMATION
  Report Type: Spontaneous
  Country: US (occurrence: US)
  Receive Date: 20181121
  Receipt Date: 20190108
  Transmission Date: 20190417
  Serious: No
  Sender: FDA-Public Use
  Company Number: US-009507513-1811USA008091

PATIENT
  Sex: Female

DRUGS (2)
  1. FOLLISTIM AQ [Suspect]
     Active Substance: FOLLITROPIN
     Indication: PLANNING TO BECOME PREGNANT
     Dosage: UNK
     Route: 058
     Dates: end: 2018
  2. PUREGON PEN [Concomitant]
     Active Substance: FOLLITROPIN
     Indication: PLANNING TO BECOME PREGNANT
     Dosage: UNK
     Route: 058
     Dates: end: 2018

REACTIONS (4)
  - Inappropriate schedule of product administration [Unknown]
  - Drug effect decreased [Unknown]
  - Product packaging quantity issue [Unknown]
  - Product dose omission [Unknown]

NARRATIVE: CASE EVENT DATE: 20181115
